FAERS Safety Report 9120088 (Version 1)
Quarter: 2013Q1

REPORT INFORMATION
  Report Type: Spontaneous
  Country: US (occurrence: US)
  Receive Date: 20130226
  Receipt Date: 20130226
  Transmission Date: 20140127
  Serious: No
  Sender: FDA-Public Use
  Company Number: US-009507513-1302USA012010

PATIENT
  Sex: Male

DRUGS (3)
  1. COSOPT [Suspect]
     Indication: GLAUCOMA
     Route: 047
  2. ALPHAGAN P [Suspect]
     Indication: GLAUCOMA
     Route: 047
  3. LUMIGAN [Suspect]
     Indication: GLAUCOMA
     Route: 047

REACTIONS (1)
  - Eye infection bacterial [Unknown]
